FAERS Safety Report 5806553-0 (Version None)
Quarter: 2008Q3

REPORT INFORMATION
  Report Type: 
  Country: None (occurrence: None)
  Receive Date: 20080710
  Receipt Date: 20080630
  Transmission Date: 20090109
  Serious: Yes (Death)
  Sender: FDA-Public Use
  Company Number: FR-GENENTECH-264050

PATIENT
  Age: 8 Year
  Sex: Female

DRUGS (1)
  1. MABTHERA [Suspect]
     Indication: LUPUS NEPHRITIS

REACTIONS (2)
  - LUNG INFECTION [None]
  - PULMONARY FIBROSIS [None]
